FAERS Safety Report 8105268-6 (Version None)
Quarter: 2012Q1

REPORT INFORMATION
  Report Type: 
  Country: None (occurrence: None)
  Receive Date: 20120201
  Receipt Date: 20120119
  Transmission Date: 20120608
  Serious: Yes (Other)
  Sender: FDA-Public Use
  Company Number: FR-PURDUE-GBR-2010-0006360

PATIENT
  Sex: Female
  Weight: 65 kg

DRUGS (16)
  1. OXYCODONE HCL [Suspect]
     Indication: PAIN
     Dosage: (20 + 10) MG, BID
     Route: 048
     Dates: start: 20100326, end: 20100328
  2. BLINDED NONE [Suspect]
     Indication: PAIN
     Dosage: (20 + 10) MG, BID
     Route: 048
     Dates: start: 20100326, end: 20100328
  3. BLINDED OXYCODONE HCL/NALOXONE HCL CRTAB 5/2.5MG [Suspect]
     Indication: PAIN
     Dosage: (20 + 10) MG, BID
     Route: 048
     Dates: start: 20100326, end: 20100328
  4. MORPHINE SULFATE [Concomitant]
     Dosage: 60 MG, BID
     Route: 048
     Dates: end: 20100326
  5. MORPHINE SULFATE [Concomitant]
     Dosage: 10 MG, PRN
     Route: 048
     Dates: end: 20100325
  6. OXYCODONE HCL [Suspect]
     Indication: PAIN
     Dosage: (20 + 10) MG, BID
     Route: 048
     Dates: start: 20100326, end: 20100328
  7. BLINDED OXYCODONE HCL/NALOXONE HCL CR TAB [Suspect]
     Indication: PAIN
     Dosage: (20 + 10) MG, BID
     Route: 048
     Dates: start: 20100326, end: 20100328
  8. MORPHINE SULFATE [Concomitant]
     Indication: PAIN
     Dosage: 10 MG, UNK
     Route: 048
     Dates: start: 20100328
  9. OXYCODONE HCL [Suspect]
     Indication: PAIN
     Dosage: (20 + 10) MG, BID
     Route: 048
     Dates: start: 20100326, end: 20100328
  10. BLINDED OXYCODONE HCL/NALOXONE HCL CR TAB 40/20MG [Suspect]
     Indication: PAIN
     Dosage: (20 + 10) MG, BID
     Route: 048
     Dates: start: 20100326, end: 20100328
  11. MORPHINE SULFATE [Concomitant]
     Indication: PAIN
     Dosage: 60 MG, BID
     Route: 048
     Dates: start: 20100328
  12. OXYCODONE HCL [Suspect]
     Indication: PAIN
     Dosage: (20 + 10) MG, BID
     Route: 048
     Dates: start: 20100326, end: 20100328
  13. OXYCODONE HCL [Suspect]
     Indication: PAIN
     Dosage: 10 MG, PRN
     Route: 048
     Dates: start: 20100327, end: 20100328
  14. OXYCODONE HCL [Suspect]
     Indication: PAIN
     Dosage: (20 + 10) MG, BID
     Route: 048
     Dates: start: 20100326, end: 20100328
  15. BLINDED OXYCODONE HCL/NALOXONE HCL CR TAB 10/5MG [Suspect]
     Indication: PAIN
     Dosage: (20 + 10) MG, BID
     Route: 048
     Dates: start: 20100326, end: 20100328
  16. BLINDED OXYCODONE HCL/NALOXONE HCL CR TAB20/10MG [Suspect]
     Indication: PAIN
     Dosage: (20 + 10) MG, BID
     Route: 048
     Dates: start: 20100326, end: 20100328

REACTIONS (1)
  - HUMAN CHORIONIC GONADOTROPIN POSITIVE [None]
